FAERS Safety Report 17070724 (Version 2)
Quarter: 2020Q1

REPORT INFORMATION
  Report Type: Spontaneous
  Country: US (occurrence: US)
  Receive Date: 20191125
  Receipt Date: 20200108
  Transmission Date: 20200409
  Serious: Yes (Other)
  Sender: FDA-Public Use
  Company Number: US-PFIZER INC-2019505882

PATIENT
  Age: 68 Year
  Sex: Male

DRUGS (1)
  1. BOSULIF [Suspect]
     Active Substance: BOSUTINIB MONOHYDRATE
     Dosage: 500 MG, UNK

REACTIONS (3)
  - Cardiac failure congestive [Unknown]
  - Neuropathy peripheral [Unknown]
  - Myocardial infarction [Unknown]
